FAERS Safety Report 7685819-6 (Version None)
Quarter: 2011Q3

REPORT INFORMATION
  Report Type: 
  Country: None (occurrence: None)
  Receive Date: 20110809
  Receipt Date: 20110809
  Transmission Date: 20111222
  Serious: Yes (Other)
  Sender: FDA-Public Use
  Company Number: None

PATIENT
  Sex: Female

DRUGS (2)
  1. HYDROCODONE/ACETAMINOPHEN AMNEAL 10/500 [Suspect]
     Indication: PAIN
     Dosage: 10/500 ONCE TWICE TID PO
     Route: 048
     Dates: start: 20110805, end: 20110808
  2. OXYCODONE/ACETAMINOPHEN AMNEAL 10/650 [Suspect]
     Indication: PAIN
     Dosage: 10/650 ONCE QID PO
     Route: 048
     Dates: start: 20110806, end: 20110808

REACTIONS (1)
  - PRODUCT MEASURED POTENCY ISSUE [None]
